FAERS Safety Report 13693935 (Version 4)
Quarter: 2017Q3

REPORT INFORMATION
  Report Type: Spontaneous
  Country: TR (occurrence: TR)
  Receive Date: 20170627
  Receipt Date: 20170815
  Transmission Date: 20171127
  Serious: Yes (Disabling, Other)
  Sender: FDA-Public Use
  Company Number: TR-PFIZER INC-2017272425

PATIENT
  Age: 54 Year
  Sex: Female
  Weight: 70 kg

DRUGS (5)
  1. PRAVACHOL [Concomitant]
     Active Substance: PRAVASTATIN SODIUM
     Dosage: UNK UNK, 1X/DAY
  2. EYESTIL [Concomitant]
     Active Substance: HYALURONATE SODIUM
     Indication: XEROPHTHALMIA
     Dosage: 4-6 TIMES A DAY
     Dates: start: 2015
  3. RECUGEL [Concomitant]
     Indication: DRY EYE
     Dosage: EVERY NIGHT
  4. XALATAN [Suspect]
     Active Substance: LATANOPROST
     Indication: GLAUCOMA
     Dosage: 1 GTT, 1X/DAY (AT 10:30 PM)
     Route: 031
     Dates: start: 2010
  5. PRAVACHOL [Concomitant]
     Active Substance: PRAVASTATIN SODIUM
     Dosage: 20MG IN EVERY 2 NIGHTS

REACTIONS (4)
  - Xerophthalmia [Recovered/Resolved]
  - Ocular hyperaemia [Recovered/Resolved]
  - Corneal thinning [Not Recovered/Not Resolved]
  - Photosensitivity reaction [Not Recovered/Not Resolved]

NARRATIVE: CASE EVENT DATE: 201706
